FAERS Safety Report 9094736 (Version 1)
Quarter: 2013Q1

REPORT INFORMATION
  Report Type: Spontaneous
  Country: US (occurrence: US)
  Receive Date: 20130220
  Receipt Date: 20130220
  Transmission Date: 20140127
  Serious: No
  Sender: FDA-Public Use
  Company Number: US-BIOGENIDEC-2013BI013896

PATIENT
  Age: 51 None
  Sex: Female

DRUGS (1)
  1. TYSABRI [Suspect]
     Indication: MULTIPLE SCLEROSIS
     Route: 042
     Dates: start: 20120926

REACTIONS (9)
  - Periarthritis [Not Recovered/Not Resolved]
  - Musculoskeletal pain [Not Recovered/Not Resolved]
  - Joint range of motion decreased [Not Recovered/Not Resolved]
  - Fall [Recovered/Resolved]
  - Haematoma [Recovered/Resolved]
  - Contusion [Recovered/Resolved]
  - Post-traumatic neck syndrome [Recovered/Resolved]
  - Breast mass [Unknown]
  - Breast pain [Unknown]
